FAERS Safety Report 14027462 (Version 1)
Quarter: 2017Q3

REPORT INFORMATION
  Report Type: Spontaneous
  Country: US (occurrence: US)
  Receive Date: 20170929
  Receipt Date: 20170929
  Transmission Date: 20171128
  Serious: Yes (Other)
  Sender: FDA-Public Use
  Company Number: US-VISTAPHARM, INC.-VER201709-000681

PATIENT
  Age: 37 Year
  Sex: Female

DRUGS (9)
  1. PREDNISOLONE. [Concomitant]
     Active Substance: PREDNISOLONE
     Indication: TACHYPNOEA
  2. ALBUTEROL. [Suspect]
     Active Substance: ALBUTEROL
     Indication: RESPIRATORY DISTRESS
  3. IPRATROPIUM [Suspect]
     Active Substance: IPRATROPIUM
     Indication: WHEEZING
  4. ALBUTEROL. [Suspect]
     Active Substance: ALBUTEROL
     Indication: WHEEZING
  5. ALBUTEROL. [Suspect]
     Active Substance: ALBUTEROL
     Indication: TACHYPNOEA
  6. IPRATROPIUM [Suspect]
     Active Substance: IPRATROPIUM
     Indication: TACHYPNOEA
  7. PREDNISOLONE. [Concomitant]
     Active Substance: PREDNISOLONE
     Indication: RESPIRATORY DISTRESS
  8. PREDNISOLONE. [Concomitant]
     Active Substance: PREDNISOLONE
     Indication: WHEEZING
  9. IPRATROPIUM [Suspect]
     Active Substance: IPRATROPIUM
     Indication: RESPIRATORY DISTRESS

REACTIONS (1)
  - Lactic acidosis [Recovered/Resolved]
